FAERS Safety Report 15814921 (Version 1)
Quarter: 2019Q1

REPORT INFORMATION
  Report Type: Spontaneous
  Country: FR (occurrence: FR)
  Receive Date: 20190111
  Receipt Date: 20190111
  Transmission Date: 20190417
  Serious: Yes (Other)
  Sender: FDA-Public Use
  Company Number: FR-ACCORD-101555

PATIENT
  Age: 64 Year
  Sex: Male
  Weight: 63 kg

DRUGS (6)
  1. CALCIUM LEVOFOLINATE [Suspect]
     Active Substance: LEVOLEUCOVORIN CALCIUM
     Indication: ADENOCARCINOMA PANCREAS
     Route: 042
     Dates: start: 20180215, end: 20180215
  2. METHYLPREDNISOLONE. [Suspect]
     Active Substance: METHYLPREDNISOLONE
     Indication: PREMEDICATION
     Route: 042
     Dates: start: 20180215, end: 20180215
  3. IRINOTECAN MYLAN [Suspect]
     Active Substance: IRINOTECAN
     Indication: ADENOCARCINOMA PANCREAS
     Route: 042
     Dates: start: 20180215, end: 20180215
  4. ATROPINE. [Suspect]
     Active Substance: ATROPINE
     Indication: PREMEDICATION
     Route: 058
     Dates: start: 20180215, end: 20180215
  5. FLUOROURACILE PFIZER [Suspect]
     Active Substance: FLUOROURACIL
     Indication: ADENOCARCINOMA PANCREAS
     Route: 041
     Dates: start: 20180215, end: 20180217
  6. ONDANSETRON [Suspect]
     Active Substance: ONDANSETRON
     Indication: PREMEDICATION
     Route: 042
     Dates: start: 20180215, end: 20180215

REACTIONS (2)
  - Pruritus [Recovering/Resolving]
  - Generalised erythema [Recovering/Resolving]

NARRATIVE: CASE EVENT DATE: 20180219
